FAERS Safety Report 10102088 (Version 1)
Quarter: 2014Q2

REPORT INFORMATION
  Report Type: Spontaneous
  Country: US (occurrence: None)
  Receive Date: 20140423
  Receipt Date: 20140423
  Transmission Date: 20141212
  Serious: Yes (Life-Threatening)
  Sender: FDA-Public Use
  Company Number: None

PATIENT
  Age: 54 Year
  Sex: Female
  Weight: 76.2 kg

DRUGS (3)
  1. FLUOXETINE [Suspect]
     Indication: DEPRESSION
     Dosage: 1 TABLET, QD, ORAL
     Route: 048
  2. ZOFRAN [Concomitant]
  3. METOCLOPROMIDE [Concomitant]

REACTIONS (3)
  - Atrial fibrillation [None]
  - Sinus tachycardia [None]
  - Ventricular fibrillation [None]
